FAERS Safety Report 7180789-1 (Version None)
Quarter: 2010Q4

REPORT INFORMATION
  Report Type: 
  Country: None (occurrence: None)
  Receive Date: 20101221
  Receipt Date: 20101207
  Transmission Date: 20110411
  Serious: Yes (Other)
  Sender: FDA-Public Use
  Company Number: GB-MYLANLABS-2010S1022373

PATIENT
  Age: 64 Year
  Sex: Female
  Weight: 85 kg

DRUGS (10)
  1. SIMVASTATIN [Suspect]
     Indication: PRODUCT USED FOR UNKNOWN INDICATION
     Dates: start: 20100817, end: 20100914
  2. SIMVASTATIN [Suspect]
     Dates: start: 20101020, end: 20101117
  3. SIMVASTATIN [Suspect]
     Dates: start: 20101201
  4. BENDROFLUMETHIAZIDE [Concomitant]
     Indication: PRODUCT USED FOR UNKNOWN INDICATION
     Dates: start: 20100817, end: 20100914
  5. CO-CODAMOL [Concomitant]
     Indication: PRODUCT USED FOR UNKNOWN INDICATION
     Dates: start: 20100920, end: 20100925
  6. PREDNISOLONE [Concomitant]
     Indication: PRODUCT USED FOR UNKNOWN INDICATION
     Dates: start: 20101020, end: 20101027
  7. TRIMETHOPRIM [Concomitant]
     Indication: PRODUCT USED FOR UNKNOWN INDICATION
     Dates: start: 20100827, end: 20100903
  8. VALSARTAN [Concomitant]
     Indication: PRODUCT USED FOR UNKNOWN INDICATION
     Dates: start: 20100817, end: 20100914
  9. BENDROFLUMETHIAZIDE [Concomitant]
     Dates: start: 20101020, end: 20101117
  10. VALSARTAN [Concomitant]
     Dates: start: 20101020, end: 20101117

REACTIONS (1)
  - PAIN IN EXTREMITY [None]
